FAERS Safety Report 5310231-4 (Version None)
Quarter: 2007Q2

REPORT INFORMATION
  Report Type: 
  Country: None (occurrence: None)
  Receive Date: 20070427
  Receipt Date: 20070418
  Transmission Date: 20071010
  Serious: Yes (Death)
  Sender: FDA-Public Use
  Company Number: MX-ROCHE-494153

PATIENT
  Age: 37 Year
  Sex: Male
  Weight: 57 kg

DRUGS (5)
  1. FORTOVASE [Suspect]
     Route: 048
     Dates: start: 20061202, end: 20070301
  2. RITONAVIR [Concomitant]
     Dates: start: 20061202, end: 20070301
  3. ABACAVIR [Concomitant]
     Dates: start: 20061202, end: 20070301
  4. LAMIVUDINE [Concomitant]
     Dates: start: 20061202, end: 20070301
  5. TRIMETHOPRIM-SULFAMETHOXAZOLE [Concomitant]
     Dosage: STRENGTH REPORTED AS 80/400MG.
     Dates: start: 20061028, end: 20070301

REACTIONS (3)
  - DECREASED APPETITE [None]
  - DIARRHOEA [None]
  - FATIGUE [None]
